FAERS Safety Report 9284508 (Version 2)
Quarter: 2013Q2

REPORT INFORMATION
  Report Type: Spontaneous
  Country: US (occurrence: US)
  Receive Date: 20130510
  Receipt Date: 20130520
  Transmission Date: 20140414
  Serious: Yes (Other)
  Sender: FDA-Public Use
  Company Number: US-SANOFI-AVENTIS-2013SA046114

PATIENT
  Age: 66 Year
  Sex: Male

DRUGS (5)
  1. PLAVIX [Suspect]
  2. SPRYCEL [Concomitant]
     Indication: CHRONIC MYELOID LEUKAEMIA
  3. GLEEVAC [Concomitant]
  4. NORVASC [Concomitant]
  5. PRILOSEC [Concomitant]

REACTIONS (1)
  - Gastrointestinal haemorrhage [Unknown]
